FAERS Safety Report 10866913 (Version 1)
Quarter: 2015Q1

REPORT INFORMATION
  Report Type: Spontaneous
  Country: DE (occurrence: DE)
  Receive Date: 20150225
  Receipt Date: 20150225
  Transmission Date: 20150721
  Serious: Yes (Death, Hospitalization, Other)
  Sender: FDA-Public Use
  Company Number: DE-AMGEN-DEUSP2015015802

PATIENT
  Age: 68 Year
  Sex: Female

DRUGS (3)
  1. PROLIA [Suspect]
     Active Substance: DENOSUMAB
     Indication: OSTEOPOROSIS
     Dosage: 60 MG, Q6MO
     Route: 065
     Dates: start: 201111
  2. ARAVA [Concomitant]
     Active Substance: LEFLUNOMIDE
     Dosage: 10 MG, UNK
  3. PREDNISOLONE. [Concomitant]
     Active Substance: PREDNISOLONE
     Dosage: 5 MG, UNK

REACTIONS (21)
  - Rheumatoid arthritis [Unknown]
  - Urosepsis [Fatal]
  - Multi-organ failure [Fatal]
  - Peripheral arterial occlusive disease [Unknown]
  - Lactic acidosis [Fatal]
  - Respiratory depression [Unknown]
  - Platelet count decreased [Unknown]
  - Diarrhoea [Unknown]
  - Gangrene [Unknown]
  - Renal failure [Unknown]
  - Pseudomembranous colitis [Unknown]
  - Cardiac arrest [Unknown]
  - Urinary tract infection [Unknown]
  - Myocardial depression [Fatal]
  - Pleural effusion [Unknown]
  - Hypercholesterolaemia [Unknown]
  - Hypokalaemia [Unknown]
  - Malaise [Unknown]
  - Osteoarthritis [Unknown]
  - Hydronephrosis [Unknown]
  - Toe amputation [Unknown]
